FAERS Safety Report 21966881 (Version 4)
Quarter: 2023Q1

REPORT INFORMATION
  Report Type: Report from Study
  Country: IL (occurrence: IL)
  Receive Date: 20230208
  Receipt Date: 20230226
  Transmission Date: 20230418
  Serious: Yes (Hospitalization, Other)
  Sender: FDA-Public Use
  Company Number: IL-ABBVIE-4298322

PATIENT
  Sex: Male

DRUGS (2)
  1. CARBIDOPA\LEVODOPA [Suspect]
     Active Substance: CARBIDOPA\LEVODOPA
     Indication: Parkinson^s disease
     Route: 050
     Dates: start: 20191119
  2. CARBIDOPA\LEVODOPA [Suspect]
     Active Substance: CARBIDOPA\LEVODOPA
     Dosage: MORNING DOSAGE (ML) 11.0, CONTINUOUS DOSAGE (ML/H) 3.0, EXTRA DOSE (ML) 1.5
     Route: 050

REACTIONS (10)
  - Fall [Recovering/Resolving]
  - Fluid intake reduced [Not Recovered/Not Resolved]
  - Groin pain [Not Recovered/Not Resolved]
  - Spinal fracture [Recovering/Resolving]
  - Hypophagia [Not Recovered/Not Resolved]
  - Stoma site pain [Not Recovered/Not Resolved]
  - Device use issue [Not Recovered/Not Resolved]
  - Device physical property issue [Unknown]
  - Stoma site erythema [Unknown]
  - Stoma site discomfort [Unknown]
